FAERS Safety Report 7298038-2 (Version None)
Quarter: 2011Q1

REPORT INFORMATION
  Report Type: 
  Country: None (occurrence: None)
  Receive Date: 20110217
  Receipt Date: 20110215
  Transmission Date: 20110831
  Serious: No
  Sender: FDA-Public Use
  Company Number: US-PFIZER INC-2011033954

PATIENT
  Sex: Male
  Weight: 68.03 kg

DRUGS (3)
  1. NIASPAN [Concomitant]
     Dosage: UNK
     Dates: start: 20081101
  2. LOVAZA [Concomitant]
     Dosage: UNK
     Dates: start: 20081101
  3. LIPITOR [Suspect]
     Indication: BLOOD CHOLESTEROL INCREASED
     Dosage: 40 MG, 1X/DAY
     Route: 048
     Dates: start: 20081101, end: 20110212

REACTIONS (2)
  - PAIN IN EXTREMITY [None]
  - MUSCLE SPASMS [None]
